FAERS Safety Report 15076660 (Version 5)
Quarter: 2018Q3

REPORT INFORMATION
  Report Type: Report from Study
  Country: None (occurrence: ES)
  Receive Date: 20180627
  Receipt Date: 20180817
  Transmission Date: 20181010
  Serious: Yes (Other)
  Sender: FDA-Public Use
  Company Number: ES-ABBVIE-18P-144-2393852-00

PATIENT
  Age: 69 Year
  Sex: Male
  Weight: 78.8 kg

DRUGS (6)
  1. DOXORUBICIN [Suspect]
     Active Substance: DOXORUBICIN
     Indication: NON-HODGKIN^S LYMPHOMA
     Dosage: MOST RECENT DOSE (78MG) ON 02 SEP 2016
     Route: 042
     Dates: start: 20160506
  2. VINCRISTINE [Suspect]
     Active Substance: VINCRISTINE
     Indication: NON-HODGKIN^S LYMPHOMA
     Dosage: MOST RECENT DOSE WAS 1.6 MG/M2 ON 02 SEP 2016
     Route: 042
     Dates: start: 20160506
  3. PREDNISONE. [Suspect]
     Active Substance: PREDNISONE
     Indication: NON-HODGKIN^S LYMPHOMA
     Dosage: DAYS 1?5 OF EACH CYCLE; MOST RECENT DOSE WAS 100 MG ON 06 SEP 2016
     Route: 048
     Dates: start: 20160506
  4. RITUXIMAB. [Suspect]
     Active Substance: RITUXIMAB
     Indication: NON-HODGKIN^S LYMPHOMA
     Dosage: MOST RECENT DOSE WAS 730 MG.M2 ON 09 NOV 2016
     Route: 042
     Dates: start: 20160506
  5. VENETOCLAX. [Suspect]
     Active Substance: VENETOCLAX
     Indication: NON-HODGKIN^S LYMPHOMA
     Dosage: MOST RECENT DOSE WAS 400 MG ON 08 SEP 2016
     Route: 048
     Dates: start: 20160509
  6. CYCLOPHOSPHAMIDE. [Suspect]
     Active Substance: CYCLOPHOSPHAMIDE
     Indication: NON-HODGKIN^S LYMPHOMA
     Dosage: MOST RECENT DOSE WAS 1170 MG/M2 ON 02 SEP 2016
     Route: 042
     Dates: start: 20160506

REACTIONS (1)
  - Acute myeloid leukaemia [Recovering/Resolving]

NARRATIVE: CASE EVENT DATE: 20180618
